FAERS Safety Report 16346312 (Version 14)
Quarter: 2022Q2

REPORT INFORMATION
  Report Type: Spontaneous
  Country: US (occurrence: US)
  Receive Date: 20190523
  Receipt Date: 20220601
  Transmission Date: 20220721
  Serious: No
  Sender: FDA-Public Use
  Company Number: US-PFIZER INC-2019093823

PATIENT
  Age: 77 Year
  Sex: Male
  Weight: 74.84 kg

DRUGS (12)
  1. DETROL LA [Suspect]
     Active Substance: TOLTERODINE TARTRATE
     Indication: Urinary incontinence
     Dosage: 4 MG
  2. DETROL LA [Suspect]
     Active Substance: TOLTERODINE TARTRATE
     Dosage: 4 MG, UNK (2 OF THE 2MG)
  3. DETROL LA [Suspect]
     Active Substance: TOLTERODINE TARTRATE
     Dosage: 6 MG, DAILY (TAKING A NUMBER 4 MG AND A NUMBER 2 MG)
  4. DETROL LA [Suspect]
     Active Substance: TOLTERODINE TARTRATE
     Dosage: UNK
  5. DETROL LA [Suspect]
     Active Substance: TOLTERODINE TARTRATE
     Dosage: UNK
  6. DETROL LA [Suspect]
     Active Substance: TOLTERODINE TARTRATE
     Dosage: UNK, (DETROL LA #4  AND DETROL LA #2, ALTERNATING EVERY 12 HOURS)
  7. DETROL LA [Suspect]
     Active Substance: TOLTERODINE TARTRATE
     Dosage: 6 MG, DAILY (DETROL LA 4 MG ONE CAPSULE AT BEDTIME AND DETROL LA 2 MG ONE CAPSULE EVERY MORNING)
  8. DETROL LA [Suspect]
     Active Substance: TOLTERODINE TARTRATE
     Dosage: 4 MG, DAILY
     Route: 048
  9. DETROL LA [Suspect]
     Active Substance: TOLTERODINE TARTRATE
     Dosage: 4 MG, DAILY (TAKING TWO 2MG DAILY)
     Route: 048
  10. DETROL LA [Suspect]
     Active Substance: TOLTERODINE TARTRATE
     Dosage: 4 MG, 1X/DAY (ONE CAPSULE AT BEDTIME)
  11. DETROL LA [Suspect]
     Active Substance: TOLTERODINE TARTRATE
     Dosage: 2 MG, 1X/DAY (ONE CAPSULE DAILY)
  12. LYRICA [Concomitant]
     Active Substance: PREGABALIN
     Indication: Neuralgia
     Dosage: 150 MG, 4X/DAY

REACTIONS (8)
  - Drug ineffective [Unknown]
  - Off label use [Unknown]
  - Product use issue [Unknown]
  - Disturbance in attention [Unknown]
  - Pain [Unknown]
  - Weight fluctuation [Unknown]
  - Urinary tract infection [Unknown]
  - Prescribed overdose [Unknown]
